FAERS Safety Report 4758939-3 (Version None)
Quarter: 2005Q3

REPORT INFORMATION
  Report Type: 
  Country: None (occurrence: None)
  Receive Date: 20050831
  Receipt Date: 20050815
  Transmission Date: 20060218
  Serious: Yes (Hospitalization, Disabling)
  Sender: FDA-Public Use
  Company Number: CLOF-10042

PATIENT
  Age: 10 Year
  Sex: Female

DRUGS (7)
  1. CLOFARABINE [Suspect]
     Indication: ACUTE LYMPHOCYTIC LEUKAEMIA
     Dosage: 52 MG/M2 DAILY
     Dates: start: 20050701, end: 20050705
  2. AMSACRINE [Concomitant]
  3. ETOPOSIDE [Concomitant]
  4. METHYLPREDNISOLONE [Concomitant]
  5. VINCRISTINE [Concomitant]
  6. DAUNORUBICIN HCL [Concomitant]
  7. PREDNISONE [Concomitant]

REACTIONS (11)
  - ACUTE LYMPHOCYTIC LEUKAEMIA RECURRENT [None]
  - DIFFICULTY IN WALKING [None]
  - EPIDERMOLYSIS [None]
  - ERYTHEMA [None]
  - FEBRILE NEUTROPENIA [None]
  - HAEMATEMESIS [None]
  - HYPOTENSION [None]
  - NEUROPATHY [None]
  - PAIN IN EXTREMITY [None]
  - PALMAR-PLANTAR ERYTHRODYSAESTHESIA SYNDROME [None]
  - PYREXIA [None]
